FAERS Safety Report 4985437-4 (Version None)
Quarter: 2006Q2

REPORT INFORMATION
  Report Type: 
  Country: None (occurrence: None)
  Receive Date: 20060428
  Receipt Date: 20060424
  Transmission Date: 20061013
  Serious: Yes (Other)
  Sender: FDA-Public Use
  Company Number: IN-RB-3175-2006

PATIENT
  Age: 24 Year
  Sex: Male

DRUGS (6)
  1. BUPRENORPHINE HCL [Suspect]
     Indication: DRUG USE FOR UNKNOWN INDICATION
     Route: 042
  2. BUPRENORPHINE HCL [Suspect]
     Route: 042
  3. BUPRENORPHINE HCL [Suspect]
     Route: 042
  4. BUPRENORPHINE HCL [Suspect]
     Dosage: 2.4 - 3.6 MG / DAILY DOSE
     Route: 042
  5. CHLORPHENIRAMINE MALEATE [Suspect]
     Indication: DRUG USE FOR UNKNOWN INDICATION
     Route: 065
  6. CHLORPHENIRAMINE MALEATE [Suspect]
     Dosage: 60-70 ML/D
     Route: 042

REACTIONS (5)
  - DRUG WITHDRAWAL SYNDROME [None]
  - GRAND MAL CONVULSION [None]
  - INTENTIONAL DRUG MISUSE [None]
  - PREMATURE EJACULATION [None]
  - SOCIAL PROBLEM [None]
